FAERS Safety Report 11349442 (Version 3)
Quarter: 2016Q1

REPORT INFORMATION
  Report Type: Spontaneous
  Country: JP (occurrence: JP)
  Receive Date: 20150807
  Receipt Date: 20160210
  Transmission Date: 20160525
  Serious: Yes (Other)
  Sender: FDA-Public Use
  Company Number: JP-ACCORD-032893

PATIENT
  Age: 57 Year
  Sex: Female

DRUGS (2)
  1. GEMCITABINE/GEMCITABINE HYDROCHLORIDE [Suspect]
     Active Substance: GEMCITABINE\GEMCITABINE HYDROCHLORIDE
     Indication: OVARIAN CANCER STAGE IV
     Dosage: 1,000MG/M/2: DAY 1 AND 8 Q3WEEKS
  2. NEDAPLATIN [Suspect]
     Active Substance: NEDAPLATIN
     Indication: OVARIAN CANCER STAGE IV

REACTIONS (5)
  - Rash [Recovering/Resolving]
  - White blood cell count decreased [Unknown]
  - Anaemia [Recovering/Resolving]
  - Cytopenia [Recovered/Resolved]
  - Hypersensitivity [Recovering/Resolving]
